FAERS Safety Report 6403456-8 (Version None)
Quarter: 2009Q4

REPORT INFORMATION
  Report Type: 
  Country: None (occurrence: None)
  Receive Date: 20091016
  Receipt Date: 20091007
  Transmission Date: 20100525
  Serious: No
  Sender: FDA-Public Use
  Company Number: NZ-ASTRAZENECA-2009SE19053

PATIENT
  Age: 14 Year
  Sex: Female

DRUGS (1)
  1. QUETIAPINE [Suspect]
     Route: 048
     Dates: start: 20021009

REACTIONS (1)
  - NEUTROPENIA [None]
